FAERS Safety Report 10484652 (Version 1)
Quarter: 2014Q3

REPORT INFORMATION
  Report Type: Spontaneous
  Country: US (occurrence: US)
  Receive Date: 20140930
  Receipt Date: 20140930
  Transmission Date: 20150326
  Serious: Yes (Other)
  Sender: FDA-Public Use
  Company Number: CHPA2014US013011

PATIENT
  Age: 60 Year
  Sex: Male

DRUGS (1)
  1. PRIVATE LABEL STEP 1 21MG ACCT UNKNOWN [Suspect]
     Active Substance: NICOTINE
     Indication: SMOKING CESSATION THERAPY
     Dosage: 1 DF, QD
     Route: 062
     Dates: start: 20140821

REACTIONS (3)
  - Abdominal pain [Recovered/Resolved]
  - Gastrointestinal infection [Recovered/Resolved]
  - Expired product administered [Unknown]

NARRATIVE: CASE EVENT DATE: 20140821
